FAERS Safety Report 23371433 (Version 3)
Quarter: 2024Q1

REPORT INFORMATION
  Report Type: Spontaneous
  Country: US (occurrence: US)
  Receive Date: 20240105
  Receipt Date: 20240301
  Transmission Date: 20240409
  Serious: Yes (Disabling)
  Sender: FDA-Public Use
  Company Number: US-SA-SAC20240101000892

PATIENT
  Age: 35 Year
  Sex: Female

DRUGS (2)
  1. DUPIXENT [Suspect]
     Active Substance: DUPILUMAB
     Indication: Eczema
     Dosage: 600 MG, 1X
     Route: 058
     Dates: start: 20231128, end: 20231128
  2. DUPIXENT [Suspect]
     Active Substance: DUPILUMAB
     Dosage: 300 MG, QOW
     Route: 058
     Dates: start: 202312

REACTIONS (8)
  - Loss of personal independence in daily activities [Unknown]
  - Emotional disorder [Unknown]
  - Affective disorder [Unknown]
  - Gastroenteritis viral [Recovered/Resolved]
  - Insomnia [Unknown]
  - Pruritus [Unknown]
  - Eczema [Unknown]
  - Injection site pain [Unknown]

NARRATIVE: CASE EVENT DATE: 20231128
